FAERS Safety Report 9870015 (Version 1)
Quarter: 2014Q1

REPORT INFORMATION
  Report Type: Spontaneous
  Country: US (occurrence: US)
  Receive Date: 20140205
  Receipt Date: 20140205
  Transmission Date: 20141002
  Serious: Yes (Other)
  Sender: FDA-Public Use
  Company Number: US-PFIZER INC-2014033455

PATIENT
  Age: 75 Year
  Sex: Female
  Weight: 56.69 kg

DRUGS (3)
  1. NEURONTIN [Suspect]
     Indication: ANXIETY
     Dosage: [100MG IN THE DAY AND 300MG AT NIGHT], 2X/DAY
     Route: 048
     Dates: start: 201309
  2. NEURONTIN [Suspect]
     Indication: SLEEP DISORDER
  3. KLONOPIN [Concomitant]
     Indication: SLEEP DISORDER
     Dosage: AN UNKNOWN DOSE (HALF OF A 0.5MG TABLET) DAILY

REACTIONS (6)
  - Drug dependence [Unknown]
  - Paraesthesia [Not Recovered/Not Resolved]
  - Somnolence [Unknown]
  - Sedation [Not Recovered/Not Resolved]
  - Malaise [Not Recovered/Not Resolved]
  - Drug ineffective for unapproved indication [Not Recovered/Not Resolved]
